FAERS Safety Report 6606582-3 (Version None)
Quarter: 2010Q1

REPORT INFORMATION
  Report Type: 
  Country: None (occurrence: None)
  Receive Date: 20100226
  Receipt Date: 20100216
  Transmission Date: 20100710
  Serious: Yes (Death)
  Sender: FDA-Public Use
  Company Number: JP-PFIZER INC-2010018896

PATIENT
  Age: 66 Year
  Sex: Female

DRUGS (7)
  1. METHYLPREDNISOLONE [Suspect]
     Indication: HEPATITIS B
     Dosage: 1000 MG PER DAY FOR THREE DAYS FOLLOWED BY TAPERING
  2. ENTECAVIR [Concomitant]
     Dosage: 0.5 MG EVERY DAY
  3. ANTITHROMBIN III [Concomitant]
     Dosage: CONCENTRATED PREPARATION
  4. NAFAMOSTAT MESILATE [Concomitant]
  5. LACTULOSE [Concomitant]
     Indication: HEPATIC ENCEPHALOPATHY
  6. KANAMYCIN [Concomitant]
     Indication: HEPATIC ENCEPHALOPATHY
  7. INTERFERON BETA [Concomitant]
     Dosage: 3000000 UNITS EVERY OTHER DAY

REACTIONS (1)
  - BRONCHOPULMONARY ASPERGILLOSIS [None]
